FAERS Safety Report 15507678 (Version 1)
Quarter: 2018Q4

REPORT INFORMATION
  Report Type: Spontaneous
  Country: US (occurrence: US)
  Receive Date: 20181016
  Receipt Date: 20181016
  Transmission Date: 20190205
  Serious: No
  Sender: FDA-Public Use
  Company Number: US-SA-2018SA285091

PATIENT
  Age: 75 Year
  Sex: Female

DRUGS (6)
  1. VITAMIN C [ASCORBIC ACID] [Concomitant]
  2. TAMSULOSIN [Concomitant]
     Active Substance: TAMSULOSIN
  3. CHLORTHALIDONE. [Concomitant]
     Active Substance: CHLORTHALIDONE
  4. LISINOPRIL. [Concomitant]
     Active Substance: LISINOPRIL
  5. AUBAGIO [Suspect]
     Active Substance: TERIFLUNOMIDE
     Indication: PRODUCT USED FOR UNKNOWN INDICATION
     Dosage: 14 MG, QD
     Route: 048
  6. VITAMIN D3 [Concomitant]
     Active Substance: CHOLECALCIFEROL

REACTIONS (1)
  - Decreased appetite [Not Recovered/Not Resolved]
